FAERS Safety Report 8616803-3 (Version None)
Quarter: 2012Q3

REPORT INFORMATION
  Report Type: 
  Country: None (occurrence: None)
  Receive Date: 20120823
  Receipt Date: 20120806
  Transmission Date: 20120928
  Serious: No
  Sender: FDA-Public Use
  Company Number: US-009507513-1208USA004144

PATIENT

DRUGS (6)
  1. FOSAMAX [Suspect]
     Indication: OSTEOPENIA
     Dosage: UNK
     Route: 048
     Dates: start: 20070101, end: 20070101
  2. VITAMINS (UNSPECIFIED) [Concomitant]
  3. ATACAND [Concomitant]
     Indication: HYPERTENSION
     Dosage: 32 MG, QD
     Route: 048
  4. NEXIUM [Concomitant]
     Dosage: 40 MG, QD
     Route: 048
  5. SPIRIVA [Concomitant]
     Dosage: UNK, QD
     Route: 055
  6. MINERALS (UNSPECIFIED) [Concomitant]

REACTIONS (1)
  - ARTHRALGIA [None]
